FAERS Safety Report 9346060 (Version 2)
Quarter: 2013Q2

REPORT INFORMATION
  Report Type: Report from Study
  Country: US (occurrence: US)
  Receive Date: 20130613
  Receipt Date: 20130624
  Transmission Date: 20140414
  Serious: Yes (Other)
  Sender: FDA-Public Use
  Company Number: US-NAPPMUNDI-USA-2013-0103108

PATIENT
  Age: 53 Year
  Sex: Female

DRUGS (2)
  1. OXYCONTIN (NDA 22-272) [Suspect]
     Indication: BACK PAIN
     Dosage: 80 MG, 2 TABLETS EVERY MORNING AND 1 TABLET EVERY EVENING
     Route: 048
     Dates: start: 2011
  2. OXYCONTIN (NDA 22-272) [Suspect]
     Dosage: 60 MG, BID
     Route: 048
     Dates: start: 2010, end: 2011

REACTIONS (4)
  - Surgery [Recovered/Resolved]
  - Neck pain [Unknown]
  - Pain [Not Recovered/Not Resolved]
  - Drug ineffective [Unknown]
